FAERS Safety Report 7628135-0 (Version None)
Quarter: 2011Q3

REPORT INFORMATION
  Report Type: 
  Country: None (occurrence: None)
  Receive Date: 20110720
  Receipt Date: 20110720
  Transmission Date: 20111222
  Serious: Yes (Hospitalization)
  Sender: FDA-Public Use
  Company Number: None

PATIENT
  Age: 53 Year
  Sex: Female
  Weight: 79.1 kg

DRUGS (1)
  1. TAXOTERE [Suspect]
     Indication: BREAST CANCER
     Dosage: 135 MG Q 21 DAYS X4 CYCLES IV
     Route: 042
     Dates: start: 20110519, end: 20110616

REACTIONS (8)
  - RENAL FAILURE ACUTE [None]
  - HYPOVOLAEMIA [None]
  - HYPONATRAEMIA [None]
  - RENAL FAILURE [None]
  - HAEMATEMESIS [None]
  - DEHYDRATION [None]
  - HYPOKALAEMIA [None]
  - HYPERGLYCAEMIA [None]
